FAERS Safety Report 23036412 (Version 1)
Quarter: 2023Q4

REPORT INFORMATION
  Report Type: Report from Study
  Country: CA (occurrence: CA)
  Receive Date: 20231006
  Receipt Date: 20231006
  Transmission Date: 20240109
  Serious: Yes (Hospitalization, Other)
  Sender: FDA-Public Use
  Company Number: CA-002147023-NVSC2022CA244359

PATIENT
  Age: 65 Year
  Sex: Female

DRUGS (3)
  1. HYRIMOZ [Suspect]
     Active Substance: ADALIMUMAB-ADAZ
     Indication: Rheumatoid arthritis
     Dosage: 40 MG
     Route: 058
     Dates: start: 20220915
  2. HYRIMOZ [Suspect]
     Active Substance: ADALIMUMAB-ADAZ
     Dosage: UNK
     Route: 065
     Dates: start: 20230202
  3. PREDNISONE [Concomitant]
     Active Substance: PREDNISONE
     Indication: Product used for unknown indication
     Dosage: UNK
     Route: 065

REACTIONS (9)
  - Fall [Unknown]
  - Pelvic fracture [Unknown]
  - Thoracic vertebral fracture [Unknown]
  - Clavicle fracture [Unknown]
  - Pneumonia [Unknown]
  - Arthritis [Unknown]
  - Back pain [Unknown]
  - Injury associated with device [Unknown]
  - Device defective [Unknown]

NARRATIVE: CASE EVENT DATE: 20221224
